FAERS Safety Report 17195392 (Version 3)
Quarter: 2020Q2

REPORT INFORMATION
  Report Type: Report from Study
  Country: ES (occurrence: ES)
  Receive Date: 20191224
  Receipt Date: 20200527
  Transmission Date: 20200713
  Serious: Yes (Death, Hospitalization)
  Sender: FDA-Public Use
  Company Number: ES-TEVA-2019-ES-1156746

PATIENT
  Age: 34 Year
  Sex: Male

DRUGS (9)
  1. TIMOGLOBULINA 5MG/ML POWDER FOR SOLUTION FOR PERFUSION, 1 VIAL (ANTITHYMOCYTE IMMUNOGLOBULIN) [Suspect]
     Active Substance: THYMOCYTE IMMUNE GLOBULIN NOS
     Indication: BONE MARROW CONDITIONING REGIMEN
     Dosage: 180 MG
     Route: 042
     Dates: start: 20180117, end: 20180123
  2. MESNA (1078A) [Concomitant]
     Active Substance: MESNA
     Dates: start: 20180117, end: 20180122
  3. METOTREXATO (418A) [Suspect]
     Active Substance: METHOTREXATE
     Route: 065
     Dates: start: 20180117, end: 20180125
  4. CICLOFOSFAMIDA (120A) [Suspect]
     Active Substance: CYCLOPHOSPHAMIDE
     Indication: BONE MARROW CONDITIONING REGIMEN
     Dosage: 2181 MG
     Route: 042
     Dates: start: 20180118, end: 20180122
  5. RANITIDINA (2A) [Concomitant]
     Active Substance: RANITIDINE
     Dates: start: 20180123, end: 20180401
  6. CICLOSPORINA (406A) [Suspect]
     Active Substance: CYCLOSPORINE
     Indication: BONE MARROW FAILURE
     Dosage: 200 MG
     Route: 048
     Dates: start: 201703, end: 20180310
  7. FLUDARABINE [Suspect]
     Active Substance: FLUDARABINE PHOSPHATE
     Indication: BONE MARROW CONDITIONING REGIMEN
     Dosage: 53.1 MG
     Route: 042
     Dates: start: 20180117, end: 20180122
  8. FOLINATO CALCICO [Concomitant]
     Active Substance: LEUCOVORIN CALCIUM
     Dates: start: 20180127, end: 20180205
  9. FUROSEMIDA (1615A) [Concomitant]
     Active Substance: FUROSEMIDE
     Dates: start: 20180117, end: 20180207

REACTIONS (1)
  - Thrombotic microangiopathy [Fatal]

NARRATIVE: CASE EVENT DATE: 20180227
